FAERS Safety Report 8790592 (Version 1)
Quarter: 2012Q4

REPORT INFORMATION
  Report Type: Spontaneous
  Country: US (occurrence: None)
  Receive Date: 20120912
  Receipt Date: 20120912
  Transmission Date: 20130627
  Serious: No
  Sender: FDA-Public Use
  Company Number: None

PATIENT
  Age: 89 Year
  Sex: Male
  Weight: 59.1 kg

DRUGS (2)
  1. PREDNISONE [Suspect]
     Indication: COPD EXACERBATION
     Route: 048
     Dates: start: 20120211, end: 20120212
  2. ASPIRIN [Suspect]
     Indication: ATRIAL FIBRILLATION
     Route: 048
     Dates: start: 20120212, end: 20120223

REACTIONS (3)
  - Anaemia [None]
  - Upper gastrointestinal haemorrhage [None]
  - Ulcer [None]
